FAERS Safety Report 19573630 (Version 2)
Quarter: 2021Q3

REPORT INFORMATION
  Report Type: Report from Study
  Country: None (occurrence: CO)
  Receive Date: 20210717
  Receipt Date: 20210805
  Transmission Date: 20211014
  Serious: Yes (Hospitalization, Other)
  Sender: FDA-Public Use
  Company Number: CO-ABBVIE-21K-036-3996169-00

PATIENT
  Age: 61 Year
  Sex: Female
  Weight: 50 kg

DRUGS (3)
  1. HUMIRA [Suspect]
     Active Substance: ADALIMUMAB
     Indication: PSORIASIS
     Route: 058
     Dates: start: 20150917
  2. HUMIRA [Suspect]
     Active Substance: ADALIMUMAB
     Indication: PSORIASIS
     Route: 058
     Dates: end: 20210630
  3. HUMIRA [Suspect]
     Active Substance: ADALIMUMAB
     Route: 058
     Dates: start: 20210730

REACTIONS (7)
  - COVID-19 [Recovered/Resolved]
  - Back pain [Recovered/Resolved]
  - Hiatus hernia [Not Recovered/Not Resolved]
  - Cough [Not Recovered/Not Resolved]
  - Influenza [Recovered/Resolved]
  - Asphyxia [Recovered/Resolved]
  - Gastritis [Not Recovered/Not Resolved]

NARRATIVE: CASE EVENT DATE: 2017
